FAERS Safety Report 7914574-7 (Version None)
Quarter: 2011Q4

REPORT INFORMATION
  Report Type: 
  Country: None (occurrence: None)
  Receive Date: 20111115
  Receipt Date: 20111104
  Transmission Date: 20120403
  Serious: Yes (Other)
  Sender: FDA-Public Use
  Company Number: PHHY2011US06929

PATIENT
  Sex: Female

DRUGS (5)
  1. AFINITOR [Suspect]
     Indication: ASTROCYTOMA
     Dosage: 5 MG, QD
     Route: 048
     Dates: start: 20110108
  2. DIASTAT [Concomitant]
  3. KEPPRA [Concomitant]
  4. VIMPAT [Concomitant]
  5. RAPAMUNE [Concomitant]

REACTIONS (18)
  - PYREXIA [None]
  - HAND-FOOT-AND-MOUTH DISEASE [None]
  - SKIN ODOUR ABNORMAL [None]
  - UPPER RESPIRATORY TRACT INFECTION [None]
  - INFANTILE SPASMS [None]
  - STARING [None]
  - CONVULSION [None]
  - SCRATCH [None]
  - DRY SKIN [None]
  - RASH [None]
  - ERYTHEMA [None]
  - SINUS HEADACHE [None]
  - MALAISE [None]
  - RASH PRURITIC [None]
  - FOLLICULITIS [None]
  - SCAB [None]
  - INFLUENZA LIKE ILLNESS [None]
  - LETHARGY [None]
